FAERS Safety Report 19459412 (Version 1)
Quarter: 2021Q2

REPORT INFORMATION
  Report Type: Spontaneous
  Country: US (occurrence: US)
  Receive Date: 20210625
  Receipt Date: 20210625
  Transmission Date: 20210717
  Serious: Yes (Hospitalization)
  Sender: FDA-Public Use
  Company Number: None

PATIENT
  Age: 58 Year
  Sex: Male

DRUGS (2)
  1. SLIDENAFIL [Concomitant]
     Active Substance: SILDENAFIL
  2. AMBRISENTAN TAB 5MG [Suspect]
     Active Substance: AMBRISENTAN
     Route: 048
     Dates: start: 202106

REACTIONS (1)
  - Swelling [None]

NARRATIVE: CASE EVENT DATE: 20210625
